FAERS Safety Report 15589926 (Version 2)
Quarter: 2018Q4

REPORT INFORMATION
  Report Type: Spontaneous
  Country: US (occurrence: US)
  Receive Date: 20181106
  Receipt Date: 20181212
  Transmission Date: 20190205
  Serious: No
  Sender: FDA-Public Use
  Company Number: PHEH2018US046072

PATIENT
  Sex: Female

DRUGS (2)
  1. AFINITOR [Suspect]
     Active Substance: EVEROLIMUS
     Dosage: 10 MG, QD
     Route: 047
  2. AFINITOR [Suspect]
     Active Substance: EVEROLIMUS
     Indication: ENDOMETRIAL NEOPLASM
     Dosage: 10 MG, QD
     Route: 048

REACTIONS (6)
  - Incorrect route of product administration [Unknown]
  - Oral pain [Unknown]
  - Pruritus generalised [Unknown]
  - Constipation [Unknown]
  - Product use in unapproved indication [Unknown]
  - Dry mouth [Unknown]
